FAERS Safety Report 9036840 (Version 2)
Quarter: 2013Q1

REPORT INFORMATION
  Report Type: Spontaneous
  Country: SG (occurrence: None)
  Receive Date: 20121206
  Receipt Date: 20130123
  Transmission Date: 20140127
  Serious: No
  Sender: FDA-Public Use
  Company Number: AESGP201200126

PATIENT
  Age: 11 Month
  Sex: Male

DRUGS (3)
  1. HYPERHEP B (HEPATITIS B IMMUNE GLOBULIN (HUMAN) ) [Suspect]
     Indication: ANTIVIRAL PROPHYLAXIS
     Route: 030
     Dates: start: 20090811
  2. ENGERIX B (NO PREF. NAME) [Suspect]
     Indication: ANTIVIRAL PROPHYLAXIS
     Route: 030
     Dates: start: 20090811
  3. INFANRIX [Suspect]
     Indication: ANTIVIRAL PROPHYLAXIS
     Route: 030
     Dates: start: 20100206

REACTIONS (3)
  - Hepatitis B surface antigen positive [None]
  - No therapeutic response [None]
  - Vertical infection transmission [None]
